FAERS Safety Report 6607676-9 (Version None)
Quarter: 2010Q1

REPORT INFORMATION
  Report Type: 
  Country: None (occurrence: None)
  Receive Date: 20100301
  Receipt Date: 20100222
  Transmission Date: 20100710
  Serious: Yes (Hospitalization)
  Sender: FDA-Public Use
  Company Number: FR-ASTRAZENECA-2010SE07521

PATIENT
  Age: 77 Year
  Sex: Female

DRUGS (8)
  1. NEXIUM [Suspect]
     Route: 048
     Dates: start: 20100104
  2. DAFALGAN [Suspect]
     Dates: start: 20100104
  3. DIPRIVAN [Concomitant]
  4. FENTANYL [Concomitant]
  5. KETAMINE HCL [Concomitant]
  6. CEFAZOLIN [Concomitant]
  7. ACUPAN [Concomitant]
  8. SPASFON [Concomitant]

REACTIONS (3)
  - CHOLESTASIS [None]
  - CYTOLYTIC HEPATITIS [None]
  - DERMATITIS EXFOLIATIVE [None]
